FAERS Safety Report 8505094 (Version 4)
Quarter: 2013Q1

REPORT INFORMATION
  Report Type: Report from Study
  Country: CH (occurrence: CH)
  Receive Date: 20120412
  Receipt Date: 20130203
  Transmission Date: 20140127
  Serious: Yes (Death, Hospitalization)
  Sender: FDA-Public Use
  Company Number: CH-CELGENEUS-151-21880-12012516

PATIENT
  Age: 73 Year
  Sex: Male

DRUGS (11)
  1. REVLIMID [Suspect]
     Indication: DIFFUSE LARGE B-CELL LYMPHOMA
     Dosage: 10 MILLIGRAM
     Route: 048
     Dates: start: 20111219, end: 20120125
  2. REVLIMID [Suspect]
     Dosage: 5 MILLIGRAM
     Route: 048
     Dates: start: 20120131, end: 20120217
  3. REVLIMID [Suspect]
     Dosage: 5 MILLIGRAM
     Route: 048
     Dates: end: 20120304
  4. RITUXIMAB [Suspect]
     Indication: DIFFUSE LARGE B-CELL LYMPHOMA
     Dosage: 750 MILLIGRAM
     Route: 041
     Dates: start: 20111219, end: 20120213
  5. BENDAMUSTINE [Suspect]
     Indication: DIFFUSE LARGE B-CELL LYMPHOMA
     Dosage: 140 MILLIGRAM
     Route: 041
     Dates: start: 20111219, end: 20120214
  6. FRAGMIN [Concomitant]
     Indication: PRODUCT USED FOR UNKNOWN INDICATION
     Dosage: 18000IE
     Route: 058
     Dates: start: 20120218
  7. ASPIRIN CARDIO [Concomitant]
     Indication: PRODUCT USED FOR UNKNOWN INDICATION
     Dosage: 100 MILLIGRAM
     Route: 048
     Dates: start: 20120206
  8. CYTARABINE [Concomitant]
     Indication: PRODUCT USED FOR UNKNOWN INDICATION
     Dosage: 50 MILLIGRAM
     Route: 037
     Dates: start: 20111219
  9. CYTARABINE [Concomitant]
     Route: 037
     Dates: start: 20120103
  10. SOLU CORTEF [Concomitant]
     Indication: PRODUCT USED FOR UNKNOWN INDICATION
     Route: 037
     Dates: start: 20111219
  11. SOLU CORTEF [Concomitant]
     Route: 037
     Dates: start: 20120103

REACTIONS (12)
  - Pneumonia [Fatal]
  - Atrial flutter [Recovered/Resolved]
  - Atrial flutter [Recovered/Resolved with Sequelae]
  - Neutropenia [Recovered/Resolved with Sequelae]
  - Thrombocytopenia [Not Recovered/Not Resolved]
  - Diarrhoea [Recovered/Resolved]
  - Pneumonia [Recovered/Resolved]
  - Headache [Recovered/Resolved]
  - Vomiting [Recovered/Resolved]
  - Vitreous haemorrhage [Not Recovered/Not Resolved]
  - Arachnoiditis [Recovered/Resolved]
  - Fatigue [Recovered/Resolved]
